FAERS Safety Report 25465859 (Version 3)
Quarter: 2025Q3

REPORT INFORMATION
  Report Type: Spontaneous
  Country: EG (occurrence: EG)
  Receive Date: 20250623
  Receipt Date: 20250703
  Transmission Date: 20251021
  Serious: Yes (Hospitalization)
  Sender: NOVO NORDISK
  Company Number: EG-NOVOPROD-1459221

PATIENT
  Age: 827 Month
  Sex: Male
  Weight: 78 kg

DRUGS (9)
  1. TRESIBA [Suspect]
     Active Substance: INSULIN DEGLUDEC
     Indication: Type 2 diabetes mellitus
     Dosage: 20 IU, QD(IN MORNING BEFORE BREAKFAST,( FROM 3 YEARS)
     Route: 058
  2. NOVORAPID [Suspect]
     Active Substance: INSULIN ASPART
     Indication: Type 2 diabetes mellitus
     Dosage: 23 IU, QD(8U AT MORNING ,13U AT LUNCH AND 2U BEFORE DINNER )
     Route: 058
  3. DAPAGLIFLOZIN [Concomitant]
     Active Substance: DAPAGLIFLOZIN
     Indication: Type 2 diabetes mellitus
     Route: 048
     Dates: start: 202309
  4. AMLODIPINE BESYLATE [Concomitant]
     Active Substance: AMLODIPINE BESYLATE
     Indication: Hypertension
     Route: 048
  5. EXFORGE [Concomitant]
     Active Substance: AMLODIPINE BESYLATE\VALSARTAN
     Indication: Hypertension
     Route: 048
     Dates: start: 2000
  6. METOPROLOL SUCCINATE [Concomitant]
     Active Substance: METOPROLOL SUCCINATE
     Indication: Hypertension
     Dosage: 200 MG, QD(1 TAB/DAY AT MORNING)
     Route: 048
  7. ONEALFA [Concomitant]
     Active Substance: ALFACALCIDOL
     Indication: Nutritional supplementation
     Route: 048
  8. MARCAL [Concomitant]
     Indication: Nutritional supplementation
     Route: 048
  9. PANTOPRAZOLE [Concomitant]
     Active Substance: PANTOPRAZOLE
     Indication: Gastritis
     Dosage: 40 MG, QD (AT MORNING)
     Route: 048

REACTIONS (1)
  - Coronary arterial stent insertion [Not Recovered/Not Resolved]

NARRATIVE: CASE EVENT DATE: 20241001
